FAERS Safety Report 6142583-X (Version None)
Quarter: 2009Q2

REPORT INFORMATION
  Report Type: 
  Country: None (occurrence: None)
  Receive Date: 20090403
  Receipt Date: 20090324
  Transmission Date: 20091009
  Serious: Yes (Hospitalization, Other)
  Sender: FDA-Public Use
  Company Number: US-BAYER-200910210BCC

PATIENT
  Age: 69 Year
  Sex: Female

DRUGS (26)
  1. ASPIRIN [Suspect]
     Indication: DRUG USE FOR UNKNOWN INDICATION
     Route: 048
     Dates: end: 20071020
  2. ASPIRIN [Suspect]
     Route: 048
  3. PLAVIX [Suspect]
     Indication: CORONARY ARTERIAL STENT INSERTION
     Dosage: TOTAL DAILY DOSE: 75 MG  UNIT DOSE: 75 MG
     Route: 048
     Dates: start: 20070108
  4. PLAVIX [Suspect]
     Route: 048
  5. DARVOCET [Concomitant]
  6. ROBAXIN [Concomitant]
  7. HYDRALAZINE HCL [Concomitant]
     Dosage: UNIT DOSE: 50 MG
  8. AMLODIPINE BESYLATE [Concomitant]
  9. KLOR-CON [Concomitant]
     Dosage: UNIT DOSE: 20 MG
  10. SIMVASTATIN [Concomitant]
  11. CLONIDINE [Concomitant]
     Dosage: UNIT DOSE: 0.2 MG
  12. BUMEX [Concomitant]
     Dosage: UNIT DOSE: 1 MG
  13. VITAMIN B6 [Concomitant]
  14. VITAMIN B3 [Concomitant]
  15. VITAMIN B-12 [Concomitant]
  16. INSULIN LISPRO [Concomitant]
     Dosage: 58 UNITS BID SUBCUTANEOUS
  17. ISOSORB [Concomitant]
  18. THEO-DUR [Concomitant]
     Dosage: UNIT DOSE: 300 MG
  19. VITAL D [Concomitant]
  20. IPRATROPIUM BROMIDE [Concomitant]
     Dosage: NEBULIZER TREATMENT
  21. SIMVASTATIN [Concomitant]
  22. AMLODIPINE BESYLATE [Concomitant]
  23. DILTIAZEM HYDROCHLORIDE [Concomitant]
     Dosage: UNIT DOSE: 240 MG
  24. METHOCARBAMOL [Concomitant]
  25. LEVOSALBUTAMOL [Concomitant]
  26. ALBUTEROL [Concomitant]

REACTIONS (4)
  - ANAEMIA [None]
  - DIPLOPIA [None]
  - ORAL DISORDER [None]
  - TONGUE HAEMORRHAGE [None]
